FAERS Safety Report 9816440 (Version 2)
Quarter: 2014Q1

REPORT INFORMATION
  Report Type: Spontaneous
  Country: FR (occurrence: FR)
  Receive Date: 20140114
  Receipt Date: 20140117
  Transmission Date: 20141002
  Serious: Yes (Hospitalization)
  Sender: FDA-Public Use
  Company Number: FR-009507513-1401FRA002550

PATIENT
  Age: 38 Year
  Sex: Male

DRUGS (4)
  1. ISENTRESS [Suspect]
     Indication: HIV INFECTION
     Dosage: 800 MG, QD
     Route: 048
     Dates: start: 20131029, end: 20131106
  2. ISENTRESS [Suspect]
     Dosage: 800 MG, QD
     Route: 048
     Dates: start: 20131108, end: 20131110
  3. TRUVADA [Suspect]
     Indication: HIV INFECTION
     Dosage: 1 DF, QD
     Route: 048
     Dates: start: 20131029, end: 20131106
  4. TRUVADA [Suspect]
     Dosage: 1 DF,QD
     Route: 048
     Dates: start: 20131108, end: 20131110

REACTIONS (2)
  - Condition aggravated [Recovered/Resolved]
  - Thrombocytopenia [Recovered/Resolved]
